FAERS Safety Report 11364116 (Version 1)
Quarter: 2015Q3

REPORT INFORMATION
  Report Type: Spontaneous
  Country: IT (occurrence: IT)
  Receive Date: 20150811
  Receipt Date: 20150811
  Transmission Date: 20151125
  Serious: Yes (Other)
  Sender: FDA-Public Use
  Company Number: IT-TEVA-583749ACC

PATIENT
  Age: 72 Year
  Sex: Male

DRUGS (1)
  1. ARSENIOUS ACID [Suspect]
     Active Substance: ARSENIC TRIOXIDE
     Indication: LEUKAEMIA
     Dosage: 1 DOSAGE FORMS DAILY; 1 DF DAILY
     Route: 048
     Dates: start: 20140101, end: 20141223

REACTIONS (3)
  - Hyporeflexia [Unknown]
  - Paraesthesia [Unknown]
  - Paresis [Unknown]

NARRATIVE: CASE EVENT DATE: 20141223
